FAERS Safety Report 17671767 (Version 1)
Quarter: 2020Q2

REPORT INFORMATION
  Report Type: Other
  Country: CA (occurrence: CA)
  Receive Date: 20200415
  Receipt Date: 20200415
  Transmission Date: 20200713
  Serious: Yes (Other)
  Sender: FDA-Public Use
  Company Number: CA-APOTEX-2020AP009779

PATIENT

DRUGS (2)
  1. BIMATOPROST. [Suspect]
     Active Substance: BIMATOPROST
     Indication: HYPOTRICHOSIS
     Dosage: UNK, BID
     Route: 061
  2. BIMATOPROST. [Suspect]
     Active Substance: BIMATOPROST
     Dosage: UNK, QD
     Route: 061

REACTIONS (5)
  - Product use in unapproved indication [Unknown]
  - Basal cell carcinoma [Unknown]
  - Breast cancer [Unknown]
  - Ocular hypertension [Unknown]
  - Dermatitis [Unknown]
